FAERS Safety Report 7003328-4 (Version None)
Quarter: 2010Q3

REPORT INFORMATION
  Report Type: 
  Country: None (occurrence: None)
  Receive Date: 20100920
  Receipt Date: 20100818
  Transmission Date: 20110219
  Serious: No
  Sender: FDA-Public Use
  Company Number: A0876514A

PATIENT
  Age: 48 Year
  Sex: Female

DRUGS (9)
  1. LAMICTAL [Suspect]
     Dosage: 25MG PER DAY
     Dates: start: 20100817
  2. CYMBALTA [Concomitant]
  3. ABILIFY [Concomitant]
  4. BENAZEPRIL HYDROCHLORIDE [Concomitant]
  5. METFORMIN [Concomitant]
  6. PROTONIX [Concomitant]
  7. DOXEPIN HCL [Concomitant]
     Dosage: 100MG AS REQUIRED
  8. VICODIN [Concomitant]
  9. ALPRAZOLAM [Concomitant]

REACTIONS (9)
  - ANGER [None]
  - BONE PAIN [None]
  - DIARRHOEA [None]
  - INAPPROPRIATE AFFECT [None]
  - INSOMNIA [None]
  - MUSCLE SPASMS [None]
  - PARAESTHESIA [None]
  - RENAL CYST [None]
  - VOMITING [None]
